FAERS Safety Report 7810051-2 (Version None)
Quarter: 2011Q4

REPORT INFORMATION
  Report Type: 
  Country: None (occurrence: None)
  Receive Date: 20111012
  Receipt Date: 20110825
  Transmission Date: 20120403
  Serious: No
  Sender: FDA-Public Use
  Company Number: US-GLAXOSMITHKLINE-A0942304A

PATIENT
  Age: 77 Year
  Sex: Male

DRUGS (2)
  1. JANUVIA [Concomitant]
  2. JALYN [Suspect]
     Indication: PROSTATOMEGALY
     Dosage: 1CAP PER DAY
     Route: 048
     Dates: start: 20110701

REACTIONS (2)
  - BREAST PAIN [None]
  - BREAST ENLARGEMENT [None]
